FAERS Safety Report 7179483-2 (Version None)
Quarter: 2010Q4

REPORT INFORMATION
  Report Type: 
  Country: None (occurrence: None)
  Receive Date: 20101208
  Receipt Date: 20101125
  Transmission Date: 20110411
  Serious: Yes (Disabling, Other)
  Sender: FDA-Public Use
  Company Number: 2009-4788

PATIENT
  Age: 50 Year
  Sex: Female
  Weight: 64 kg

DRUGS (1)
  1. SOMATULINE DEPOT [Suspect]
     Indication: NEUROENDOCRINE TUMOUR
     Dosage: 60MG (ONLY ONE DOSE GIVEN) (60 MG, ONCE), INTRAMUSCULAR
     Route: 030
     Dates: start: 20090901, end: 20090901

REACTIONS (4)
  - ABDOMINAL PAIN [None]
  - ACTIVITIES OF DAILY LIVING IMPAIRED [None]
  - APPETITE DISORDER [None]
  - BOWEL MOVEMENT IRREGULARITY [None]
